FAERS Safety Report 18584642 (Version 1)
Quarter: 2020Q4

REPORT INFORMATION
  Report Type: Spontaneous
  Country: US (occurrence: US)
  Receive Date: 20201207
  Receipt Date: 20201207
  Transmission Date: 20210114
  Serious: No
  Sender: FDA-Public Use
  Company Number: US-MICRO LABS LIMITED-ML2020-03531

PATIENT
  Sex: Female
  Weight: 66.74 kg

DRUGS (6)
  1. TRAVATAN [Concomitant]
     Active Substance: TRAVOPROST
     Indication: GLAUCOMA
     Dosage: ONE DROP IN BOTH EYES AT NIGHT
     Route: 047
  2. DORZOLAMIDE/TIMOLOL [Suspect]
     Active Substance: DORZOLAMIDE\TIMOLOL
     Indication: GLAUCOMA
     Dosage: 22.3 MG / 6.8 MG PER ML, TWO DROPS TWICE DAILY IN BOTH EYES
     Route: 047
     Dates: start: 202009
  3. DORZOLAMIDE/TIMOLOL [Suspect]
     Active Substance: DORZOLAMIDE\TIMOLOL
     Dates: start: 2019, end: 2019
  4. DORZOLAMIDE/TIMOLOL [Suspect]
     Active Substance: DORZOLAMIDE\TIMOLOL
     Indication: GLAUCOMA
     Dates: start: 2018, end: 2018
  5. DORZOLAMIDE/TIMOLOL [Suspect]
     Active Substance: DORZOLAMIDE\TIMOLOL
     Dates: start: 2019, end: 2019
  6. DORZOLAMIDE/TIMOLOL [Suspect]
     Active Substance: DORZOLAMIDE\TIMOLOL
     Dates: start: 2018, end: 2018

REACTIONS (4)
  - Epistaxis [Recovered/Resolved]
  - Abdominal pain [Not Recovered/Not Resolved]
  - Cough [Not Recovered/Not Resolved]
  - Dyspepsia [Not Recovered/Not Resolved]

NARRATIVE: CASE EVENT DATE: 2018
